FAERS Safety Report 15636145 (Version 1)
Quarter: 2018Q4

REPORT INFORMATION
  Report Type: Spontaneous
  Country: DE (occurrence: DE)
  Receive Date: 20181120
  Receipt Date: 20181120
  Transmission Date: 20190205
  Serious: Yes (Other)
  Sender: FDA-Public Use
  Company Number: DE-ROCHE-2216676

PATIENT
  Age: 74 Year
  Sex: Male

DRUGS (6)
  1. RITUXIMAB. [Suspect]
     Active Substance: RITUXIMAB
     Indication: MANTLE CELL LYMPHOMA
     Dosage: UNK (6 CYCLES)
     Route: 065
  2. CYCLOPHOSPHAMIDE. [Suspect]
     Active Substance: CYCLOPHOSPHAMIDE
     Indication: MANTLE CELL LYMPHOMA
     Dosage: UNK
     Route: 065
  3. VINCRISTINE [Suspect]
     Active Substance: VINCRISTINE
     Indication: MANTLE CELL LYMPHOMA
     Route: 065
  4. BENDAMUSTINE [Suspect]
     Active Substance: BENDAMUSTINE
     Indication: MANTLE CELL LYMPHOMA
     Dosage: 6 CYCLES
     Route: 065
  5. DOXORUBICIN [Suspect]
     Active Substance: DOXORUBICIN
     Indication: MANTLE CELL LYMPHOMA
     Route: 065
  6. PREDNISOLONE. [Suspect]
     Active Substance: PREDNISOLONE
     Indication: MANTLE CELL LYMPHOMA
     Route: 065

REACTIONS (2)
  - Malignant neoplasm progression [Unknown]
  - Metastases to gastrointestinal tract [Unknown]
